FAERS Safety Report 6680694-0 (Version None)
Quarter: 2010Q2

REPORT INFORMATION
  Report Type: 
  Country: None (occurrence: None)
  Receive Date: 20100414
  Receipt Date: 20100409
  Transmission Date: 20101027
  Serious: Yes (Disabling)
  Sender: FDA-Public Use
  Company Number: GB-WYE-G05928510

PATIENT
  Age: 29 Year
  Sex: Female
  Weight: 70 kg

DRUGS (7)
  1. VENLAFAXINE HYDROCHLORIDE [Suspect]
     Indication: DEPRESSION
     Dosage: 75 MG (FREQUENCY UNSPECIFIED)
     Route: 048
     Dates: start: 20100204, end: 20100311
  2. SODIUM PICOSULFATE [Concomitant]
     Indication: CONSTIPATION
     Route: 048
     Dates: start: 20091218
  3. HYOSCINE HBR HYT [Concomitant]
     Indication: IRRITABLE BOWEL SYNDROME
     Route: 048
     Dates: start: 20091218
  4. METHYLCELLULOSE [Concomitant]
     Indication: CONSTIPATION
     Route: 048
     Dates: start: 20090201
  5. CITALOPRAM HYDROBROMIDE [Concomitant]
     Dosage: 40 MG (FREQUENCY UNSPECIFIED)
     Dates: start: 20090409, end: 20100101
  6. CITALOPRAM HYDROBROMIDE [Concomitant]
     Dosage: UNKNOWN
     Dates: start: 20100101
  7. GABAPENTIN [Concomitant]
     Dates: start: 20090213

REACTIONS (2)
  - DYSARTHRIA [None]
  - HEMIPLEGIA [None]
